FAERS Safety Report 4518116-8 (Version None)
Quarter: 2004Q4

REPORT INFORMATION
  Report Type: 
  Country: None (occurrence: None)
  Receive Date: 20041130
  Receipt Date: 20041117
  Transmission Date: 20050328
  Serious: Yes (Hospitalization, Disabling)
  Sender: FDA-Public Use
  Company Number: 2004090133

PATIENT
  Age: 57 Year
  Sex: Male
  Weight: 95.2554 kg

DRUGS (3)
  1. NARDIL [Suspect]
     Indication: DEPRESSION
     Dosage: 45 MG (15 MG), ORAL
     Route: 048
  2. NARDIL [Suspect]
     Indication: SOCIAL PHOBIA
     Dosage: 45 MG (15 MG), ORAL
     Route: 048
  3. CLONAZEPAM [Concomitant]

REACTIONS (10)
  - ANXIETY [None]
  - DIABETES MELLITUS [None]
  - DRUG INEFFECTIVE [None]
  - FEELING OF DESPAIR [None]
  - MALAISE [None]
  - MEDICATION ERROR [None]
  - PHARMACEUTICAL PRODUCT COMPLAINT [None]
  - SELF-MEDICATION [None]
  - SUICIDAL IDEATION [None]
  - THINKING ABNORMAL [None]
